FAERS Safety Report 22391039 (Version 4)
Quarter: 2023Q4

REPORT INFORMATION
  Report Type: Spontaneous
  Country: AE (occurrence: AE)
  Receive Date: 20230601
  Receipt Date: 20231115
  Transmission Date: 20240109
  Serious: Yes (Death)
  Sender: FDA-Public Use
  Company Number: AE-002147023-NVSC2023AE124886

PATIENT
  Age: 2 Year
  Sex: Female
  Weight: 8.5 kg

DRUGS (1)
  1. ZOLGENSMA [Suspect]
     Active Substance: ONASEMNOGENE ABEPARVOVEC-XIOI
     Indication: Product used for unknown indication
     Dosage: 46.8 ML, ONCE/SINGLE
     Route: 042
     Dates: start: 20230414

REACTIONS (2)
  - Aspiration [Fatal]
  - Cardiac arrest [Fatal]
